FAERS Safety Report 4692725-8 (Version None)
Quarter: 2005Q2

REPORT INFORMATION
  Report Type: 
  Country: None (occurrence: None)
  Receive Date: 20050617
  Receipt Date: 20050513
  Transmission Date: 20051028
  Serious: Yes (Life-Threatening, Hospitalization, Other)
  Sender: FDA-Public Use
  Company Number: US-GLAXOSMITHKLINE-A0558531A

PATIENT
  Age: 48 Year
  Sex: Female
  Weight: 48.6 kg

DRUGS (3)
  1. WELLBUTRIN [Suspect]
     Indication: DEPRESSION
     Dosage: 150MG PER DAY
     Route: 048
     Dates: start: 20050406, end: 20050428
  2. ALCOHOL [Suspect]
  3. BENICAR [Concomitant]

REACTIONS (7)
  - ALCOHOL WITHDRAWAL SYNDROME [None]
  - AMNESIA [None]
  - EXTRADURAL HAEMATOMA [None]
  - FALL [None]
  - GRAND MAL CONVULSION [None]
  - HEAD INJURY [None]
  - SKULL FRACTURE [None]
